FAERS Safety Report 25777517 (Version 1)
Quarter: 2025Q3

REPORT INFORMATION
  Report Type: Spontaneous
  Country: CA (occurrence: CA)
  Receive Date: 20250909
  Receipt Date: 20250909
  Transmission Date: 20251021
  Serious: Yes (Other)
  Sender: TEVA
  Company Number: CA-TEVA-VS-3370602

PATIENT
  Age: 32 Year
  Sex: Female

DRUGS (8)
  1. BETAMETHASONE [Suspect]
     Active Substance: BETAMETHASONE
     Indication: Delivery
     Route: 065
  2. INSULIN NOS [Suspect]
     Active Substance: INSULIN NOS
     Indication: Gestational diabetes
     Route: 065
  3. ARIPIPRAZOLE [Suspect]
     Active Substance: ARIPIPRAZOLE
     Indication: Psychotic symptom
     Route: 065
  4. DALTEPARIN SODIUM [Suspect]
     Active Substance: DALTEPARIN SODIUM
     Indication: Deep vein thrombosis
     Route: 065
  5. LEVOMILNACIPRAN [Suspect]
     Active Substance: LEVOMILNACIPRAN
     Indication: Depression
     Route: 065
  6. LEVOMILNACIPRAN [Suspect]
     Active Substance: LEVOMILNACIPRAN
     Indication: Depression
     Route: 065
  7. DESVENLAFAXINE [Suspect]
     Active Substance: DESVENLAFAXINE
     Indication: Depression
     Route: 065
  8. DESVENLAFAXINE [Suspect]
     Active Substance: DESVENLAFAXINE
     Indication: Depression
     Route: 065

REACTIONS (4)
  - Gestational diabetes [Unknown]
  - Exposure during pregnancy [Unknown]
  - Premature delivery [Unknown]
  - Preterm premature rupture of membranes [Unknown]
